FAERS Safety Report 10614715 (Version 1)
Quarter: 2014Q4

REPORT INFORMATION
  Report Type: Spontaneous
  Country: SE (occurrence: SE)
  Receive Date: 20141201
  Receipt Date: 20141201
  Transmission Date: 20150529
  Serious: Yes (Hospitalization)
  Sender: FDA-Public Use
  Company Number: PHHY2014SE151255

PATIENT
  Age: 89 Year
  Sex: Male

DRUGS (4)
  1. METOPROLOL SANDOZ [Suspect]
     Active Substance: METOPROLOL
     Indication: ATRIAL FIBRILLATION
     Dosage: 25 MG, QD
     Route: 048
     Dates: start: 20141105, end: 20141107
  2. CERNITOL [Concomitant]
  3. ELIQUIS [Concomitant]
     Active Substance: APIXABAN
  4. HYDROXYUREA MEDAC [Concomitant]
     Indication: POLYCYTHAEMIA VERA

REACTIONS (4)
  - Confusional state [Recovered/Resolved]
  - Hallucination [Recovered/Resolved]
  - Anger [Recovered/Resolved]
  - Personality change [Recovered/Resolved]

NARRATIVE: CASE EVENT DATE: 20141107
